FAERS Safety Report 8935655 (Version 1)
Quarter: 2012Q4

REPORT INFORMATION
  Report Type: 
  Country: US (occurrence: US)
  Receive Date: 20121130
  Receipt Date: 20121130
  Transmission Date: 20130627
  Serious: Yes (Other)
  Sender: FDA-Public Use
  Company Number: PHHY2012US108974

PATIENT
  Age: 55 Year
  Sex: Female

DRUGS (1)
  1. ZOLEDRONIC ACID [Suspect]
     Indication: OSTEOPOROSIS

REACTIONS (7)
  - Eye pain [Recovering/Resolving]
  - Ocular hyperaemia [Unknown]
  - Eye swelling [Recovering/Resolving]
  - Periorbital oedema [Unknown]
  - Conjunctival oedema [Unknown]
  - Cellulitis orbital [Not Recovered/Not Resolved]
  - Parophthalmia [Unknown]
